FAERS Safety Report 6740189-2 (Version None)
Quarter: 2010Q2

REPORT INFORMATION
  Report Type: 
  Country: None (occurrence: None)
  Receive Date: 20100525
  Receipt Date: 20100519
  Transmission Date: 20101027
  Serious: Yes (Hospitalization)
  Sender: FDA-Public Use
  Company Number: A0791307A

PATIENT
  Age: 83 Year
  Sex: Male

DRUGS (9)
  1. AVANDIA [Suspect]
     Dosage: 4MG TWICE PER DAY
     Route: 048
     Dates: start: 20060901, end: 20070216
  2. PEPCID [Concomitant]
  3. ZOCOR [Concomitant]
  4. CELEXA [Concomitant]
  5. GLIPIZIDE [Concomitant]
  6. CARVEDILOL [Concomitant]
  7. LOSARTAN POTASSIUM [Concomitant]
  8. SEREVENT [Concomitant]
  9. FLOVENT [Concomitant]

REACTIONS (3)
  - CARDIAC FAILURE CONGESTIVE [None]
  - CORONARY ARTERY DISEASE [None]
  - MYOCARDIAL INFARCTION [None]
